FAERS Safety Report 5627589-9 (Version None)
Quarter: 2008Q1

REPORT INFORMATION
  Report Type: 
  Country: None (occurrence: None)
  Receive Date: 20080215
  Receipt Date: 20080205
  Transmission Date: 20080703
  Serious: Yes (Other)
  Sender: FDA-Public Use
  Company Number: US-ROCHE-545919

PATIENT
  Age: 44 Year
  Sex: Female
  Weight: 108.9 kg

DRUGS (3)
  1. PEG-INTERFERON A-2A (RO 25-8310) [Suspect]
     Dosage: FORM: PRE-FILLED SYRINGE (PFS)
     Route: 065
     Dates: start: 20071213
  2. RIBAVIRIN [Suspect]
     Route: 065
     Dates: start: 20071213
  3. PROZAC [Concomitant]

REACTIONS (1)
  - PLEURISY [None]
